FAERS Safety Report 6242267-3 (Version None)
Quarter: 2009Q2

REPORT INFORMATION
  Report Type: 
  Country: None (occurrence: None)
  Receive Date: 20090622
  Receipt Date: 20090622
  Transmission Date: 20091009
  Serious: No
  Sender: FDA-Public Use
  Company Number: None

PATIENT
  Age: 20 Year
  Sex: Male
  Weight: 95.2554 kg

DRUGS (2)
  1. ZICAM COLD REMEDY SWABS 20 SWABS ZICAM [Suspect]
     Indication: NASOPHARYNGITIS
     Dosage: TWICE DAILY NASAL
     Route: 045
     Dates: start: 20081101, end: 20081201
  2. ZICAM COLD REMEDY NASAL GEL 15ML ZICAM [Suspect]
     Indication: NASOPHARYNGITIS
     Dosage: TWICE DAILY NASAL
     Route: 045
     Dates: start: 20081101, end: 20081201

REACTIONS (2)
  - ANOSMIA [None]
  - PAROSMIA [None]
